FAERS Safety Report 7493814-5 (Version None)
Quarter: 2011Q2

REPORT INFORMATION
  Report Type: 
  Country: None (occurrence: None)
  Receive Date: 20110520
  Receipt Date: 20110505
  Transmission Date: 20111010
  Serious: Yes (Death)
  Sender: FDA-Public Use
  Company Number: US-CELGENEUS-163-21880-11050011

PATIENT
  Sex: Male

DRUGS (9)
  1. OXYCODONE HCL [Concomitant]
     Indication: PAIN
     Dosage: 5 MILLIGRAM
     Route: 048
     Dates: end: 20110410
  2. REVLIMID [Suspect]
     Indication: MANTLE CELL LYMPHOMA
     Dosage: 25 MILLIGRAM
     Route: 048
     Dates: start: 20110318, end: 20110331
  3. ALLOPURINOL [Concomitant]
     Dosage: 300 MILLIGRAM
     Route: 048
     Dates: start: 20110304, end: 20110410
  4. FLUCONAZOLE [Concomitant]
     Dosage: 400 MILLIGRAM
     Route: 048
     Dates: start: 20101220, end: 20110110
  5. POTASSIUM [Concomitant]
     Dosage: 20 MILLIEQUIVALENTS
     Route: 048
     Dates: start: 20110323, end: 20110410
  6. MSIR [Concomitant]
     Indication: PAIN
     Dosage: 15 MILLIGRAM
     Route: 048
     Dates: end: 20110410
  7. PRILOSEC [Concomitant]
     Dosage: 40 MILLIGRAM
     Route: 048
  8. ACYCLOVIR [Concomitant]
     Indication: ANTIVIRAL PROPHYLAXIS
     Dosage: 400 MILLIGRAM
     Route: 048
     Dates: start: 20101220, end: 20110410
  9. LEVAQUIN [Concomitant]
     Indication: ANTIBIOTIC THERAPY
     Dosage: 500 MILLIGRAM
     Route: 048
     Dates: start: 20101220, end: 20110110

REACTIONS (1)
  - MANTLE CELL LYMPHOMA [None]
